FAERS Safety Report 6243539-9 (Version None)
Quarter: 2009Q2

REPORT INFORMATION
  Report Type: 
  Country: None (occurrence: None)
  Receive Date: 20090624
  Receipt Date: 20090615
  Transmission Date: 20091009
  Serious: Yes (Life-Threatening, Hospitalization)
  Sender: FDA-Public Use
  Company Number: PHHO2009AU07426

PATIENT
  Sex: Female
  Weight: 64 kg

DRUGS (1)
  1. AMN107 AMN+CAP [Suspect]
     Indication: CHRONIC MYELOID LEUKAEMIA
     Dosage: 800 MG
     Route: 048
     Dates: start: 20050816

REACTIONS (3)
  - ACUTE MYOCARDIAL INFARCTION [None]
  - AORTIC STENOSIS [None]
  - CHEST PAIN [None]
